FAERS Safety Report 12631158 (Version 2)
Quarter: 2016Q3

REPORT INFORMATION
  Report Type: Spontaneous
  Country: US (occurrence: US)
  Receive Date: 20160808
  Receipt Date: 20160808
  Transmission Date: 20161109
  Serious: No
  Sender: FDA-Public Use
  Company Number: US-BEH-2015052524

PATIENT
  Sex: Female
  Weight: 49 kg

DRUGS (12)
  1. EPIPEN [Concomitant]
     Active Substance: EPINEPHRINE
  2. AMBIEN [Concomitant]
     Active Substance: ZOLPIDEM TARTRATE
  3. CALCIUM MAGNESIUM [Concomitant]
     Active Substance: CALCIUM\MAGNESIUM
  4. AMITRIPTYLINE [Concomitant]
     Active Substance: AMITRIPTYLINE
  5. MELATONIN [Concomitant]
     Active Substance: MELATONIN
  6. ACETAMINOPHEN. [Concomitant]
     Active Substance: ACETAMINOPHEN
  7. DIPHENHYDRAMINE. [Concomitant]
     Active Substance: DIPHENHYDRAMINE
  8. CEFTIN [Concomitant]
     Active Substance: CEFUROXIME AXETIL
  9. HIZENTRA [Suspect]
     Active Substance: HUMAN IMMUNOGLOBULIN G
     Indication: IMMUNODEFICIENCY COMMON VARIABLE
     Dosage: 4 GM 20 ML VIAL
     Route: 058
  10. HIZENTRA [Suspect]
     Active Substance: HUMAN IMMUNOGLOBULIN G
     Indication: LYME DISEASE
     Dosage: 4 GM 20 ML VIAL
     Route: 058
  11. MULTIVITAMIN [Concomitant]
     Active Substance: VITAMINS
  12. CEFUROXIME. [Concomitant]
     Active Substance: CEFUROXIME

REACTIONS (4)
  - Infusion site erythema [Unknown]
  - Infusion site pruritus [Unknown]
  - Infusion site oedema [Unknown]
  - Infusion site pain [Unknown]
